FAERS Safety Report 22361118 (Version 4)
Quarter: 2024Q2

REPORT INFORMATION
  Report Type: Spontaneous
  Country: US (occurrence: US)
  Receive Date: 20230524
  Receipt Date: 20240404
  Transmission Date: 20240716
  Serious: Yes (Hospitalization, Other)
  Sender: FDA-Public Use
  Company Number: US-SUN PHARMACEUTICAL INDUSTRIES LTD-2023R1-388980

PATIENT
  Sex: Female
  Weight: 117.91 kg

DRUGS (4)
  1. EPOPROSTENOL [Suspect]
     Active Substance: EPOPROSTENOL
     Indication: Pulmonary arterial hypertension
     Dosage: UNK, 46.5 NG/KG/MIN, CONTINUOUS
     Route: 042
     Dates: start: 20230209
  2. EPOPROSTENOL [Suspect]
     Active Substance: EPOPROSTENOL
     Dosage: UNK, 52 NG/KG/MIN, CONTINUOUS
     Route: 042
     Dates: start: 20230209
  3. WARFARIN [Concomitant]
     Active Substance: WARFARIN
     Indication: Product used for unknown indication
     Dosage: UNK
     Route: 065
  4. OPSUMIT [Concomitant]
     Active Substance: MACITENTAN
     Indication: Product used for unknown indication
     Dosage: UNK
     Route: 065

REACTIONS (7)
  - Oral infection [Recovering/Resolving]
  - Parotitis [Unknown]
  - Masticatory pain [Recovering/Resolving]
  - Swelling face [Unknown]
  - Ear infection [Unknown]
  - Sinusitis [Unknown]
  - Sialoadenitis [Unknown]
